FAERS Safety Report 9263639 (Version 1)
Quarter: 2013Q2

REPORT INFORMATION
  Report Type: Spontaneous
  Country: US (occurrence: US)
  Receive Date: 20130430
  Receipt Date: 20130430
  Transmission Date: 20140414
  Serious: Yes (Death)
  Sender: FDA-Public Use
  Company Number: US-COVIDIEN/TYCO HEALTHCARE/MALLINCKRODT-T201300063

PATIENT
  Age: 70 Year
  Sex: Female

DRUGS (3)
  1. METHYLIN [Suspect]
     Indication: DEPRESSION
     Dosage: 10 MG AT 1600
     Dates: start: 20130108
  2. METHYLIN [Suspect]
     Dosage: 10 MG AT 0730; 10 MG 0945
     Dates: start: 20130109
  3. METHYLPHENIDATE [Suspect]
     Dosage: 5 MG AT 0900
     Dates: start: 20130109, end: 20130109

REACTIONS (3)
  - Inappropriate schedule of drug administration [Unknown]
  - Somnolence [Unknown]
  - Drug ineffective [Not Recovered/Not Resolved]
